FAERS Safety Report 18858380 (Version 1)
Quarter: 2021Q1

REPORT INFORMATION
  Report Type: Spontaneous
  Country: US (occurrence: US)
  Receive Date: 20210205
  Receipt Date: 20210205
  Transmission Date: 20210420
  Serious: Yes (Life-Threatening)
  Sender: FDA-Public Use
  Company Number: None

PATIENT
  Age: 71 Year
  Sex: Male
  Weight: 63.14 kg

DRUGS (2)
  1. KYMRIAH [Suspect]
     Active Substance: TISAGENLECLEUCEL
     Indication: DIFFUSE LARGE B-CELL LYMPHOMA STAGE IV
     Dates: start: 20210120, end: 20210120
  2. TISGENLECLEUCEL (KYMRIAH) [Concomitant]
     Dates: start: 20210120, end: 20210120

REACTIONS (8)
  - Pyrexia [None]
  - Sedation [None]
  - Electroencephalogram abnormal [None]
  - Mental status changes [None]
  - Encephalopathy [None]
  - Agitation [None]
  - Neurotoxicity [None]
  - Miosis [None]

NARRATIVE: CASE EVENT DATE: 20210204
